FAERS Safety Report 6812762-4 (Version None)
Quarter: 2010Q3

REPORT INFORMATION
  Report Type: 
  Country: None (occurrence: None)
  Receive Date: 20100701
  Receipt Date: 20100617
  Transmission Date: 20110219
  Serious: Yes (Other)
  Sender: FDA-Public Use
  Company Number: A0867854A

PATIENT
  Age: 19 Year
  Sex: Female

DRUGS (2)
  1. AVAMYS [Suspect]
     Route: 045
  2. NONE [Concomitant]

REACTIONS (2)
  - ASTHMA [None]
  - HYPERSENSITIVITY [None]
